FAERS Safety Report 4487482-4 (Version None)
Quarter: 2004Q3

REPORT INFORMATION
  Report Type: 
  Country: None (occurrence: None)
  Receive Date: 20040921
  Receipt Date: 20040421
  Transmission Date: 20050211
  Serious: Yes (Hospitalization)
  Sender: FDA-Public Use
  Company Number: 163-20785-04040654(0)

PATIENT
  Age: 29 Year
  Sex: Female
  Weight: 56.2 kg

DRUGS (6)
  1. THALOMID [Suspect]
     Indication: PARAGANGLION NEOPLASM
     Dosage: 100 MG, QD, P.O
     Route: 048
     Dates: start: 20021209, end: 20040412
  2. TEMODAR [Suspect]
     Indication: NEOPLASM MALIGNANT
     Dosage: 235 MG, QD, P.O
     Route: 048
     Dates: start: 20021209, end: 20040412
  3. DILAUDID [Concomitant]
  4. ZOLOFT (SERTRALINE HYDOCHLORIDE) [Concomitant]
  5. NIFEDIPINE [Concomitant]
  6. PHENOXYBENZAMINE (PHENOXYBENZAMINE) [Concomitant]

REACTIONS (17)
  - ASTHENIA [None]
  - BLOOD ALBUMIN DECREASED [None]
  - BLOOD CALCIUM DECREASED [None]
  - BLOOD GLUCOSE INCREASED [None]
  - BLOOD POTASSIUM DECREASED [None]
  - BLOOD SODIUM DECREASED [None]
  - BLOOD URINE PRESENT [None]
  - BUTTOCK PAIN [None]
  - DIPLOPIA [None]
  - HAEMATOCRIT DECREASED [None]
  - HAEMOGLOBIN DECREASED [None]
  - HYDRONEPHROSIS [None]
  - LABORATORY TEST ABNORMAL [None]
  - PELVIC ABSCESS [None]
  - PYREXIA [None]
  - STAPHYLOCOCCAL SEPSIS [None]
  - URINARY INCONTINENCE [None]
